FAERS Safety Report 17073044 (Version 2)
Quarter: 2019Q4

REPORT INFORMATION
  Report Type: Report from Study
  Country: US (occurrence: US)
  Receive Date: 20191125
  Receipt Date: 20191212
  Transmission Date: 20200122
  Serious: Yes (Hospitalization, Other)
  Sender: FDA-Public Use
  Company Number: US-EXELIXIS-XL18419024985

PATIENT
  Age: 60 Year
  Sex: Male
  Weight: 73.1 kg

DRUGS (4)
  1. IPILIMUMAB [Suspect]
     Active Substance: IPILIMUMAB
     Indication: BLADDER TRANSITIONAL CELL CARCINOMA
     Dosage: 1 MG/KG, ON DAY 1
     Route: 042
     Dates: start: 20190913
  2. NIVOLUMAB [Suspect]
     Active Substance: NIVOLUMAB
     Indication: BLADDER TRANSITIONAL CELL CARCINOMA
     Dosage: 3 MG/KG, ON DAY 1
     Route: 042
     Dates: start: 20190913
  3. XL184 [Suspect]
     Active Substance: CABOZANTINIB
     Indication: BLADDER TRANSITIONAL CELL CARCINOMA
     Dosage: 40 MG, QD
     Route: 048
     Dates: start: 20190913
  4. XL184 [Suspect]
     Active Substance: CABOZANTINIB
     Dosage: 20 MG, QD
     Route: 048

REACTIONS (3)
  - Anal fistula [Unknown]
  - Small intestinal obstruction [Recovering/Resolving]
  - Proteinuria [Recovered/Resolved]

NARRATIVE: CASE EVENT DATE: 20191004
